FAERS Safety Report 7076947-7 (Version None)
Quarter: 2010Q4

REPORT INFORMATION
  Report Type: 
  Country: None (occurrence: None)
  Receive Date: 20101101
  Receipt Date: 20101022
  Transmission Date: 20110411
  Serious: Yes (Other)
  Sender: FDA-Public Use
  Company Number: FR-NOVOPROD-317086

PATIENT
  Sex: Male

DRUGS (5)
  1. VICTOZA [Suspect]
     Indication: DIABETES MELLITUS
     Dosage: 0.6 MG, QD
     Route: 058
     Dates: start: 20100723, end: 20100726
  2. ACTOS [Concomitant]
     Dosage: UNK
     Dates: start: 20100401
  3. DIAMICRON [Concomitant]
     Dosage: UNK
     Dates: start: 20100401
  4. TEMERIT                            /01339101/ [Concomitant]
     Indication: HYPERTENSION
  5. FORZAAR                            /01284801/ [Concomitant]
     Indication: HYPERTENSION

REACTIONS (2)
  - DIZZINESS [None]
  - FALL [None]
